FAERS Safety Report 9244089 (Version 1)
Quarter: 2013Q1

REPORT INFORMATION
  Report Type: Spontaneous
  Country: US (occurrence: None)
  Receive Date: 20121123
  Receipt Date: 20121123
  Transmission Date: 20140127
  Serious: Yes (Other)
  Sender: FDA-Public Use
  Company Number: 362937

PATIENT
  Age: 73 Year
  Sex: Female
  Weight: 63.9 kg

DRUGS (4)
  1. VICTOZA (LIRAGLUTIDE) SOLUTION FOR INJECTION, 6MG/ML [Suspect]
     Indication: TYPE 2 DIABETES MELLITUS
     Route: 058
     Dates: start: 20121010, end: 20121013
  2. GLIPIZIDE (GLIPIZIDE) [Concomitant]
  3. LOSARTAN (LOSARTAN) [Concomitant]
  4. SIMVASTATIN (SIMVASTATIN) [Concomitant]

REACTIONS (4)
  - Dehydration [None]
  - Abdominal pain [None]
  - Nausea [None]
  - Vomiting [None]
